FAERS Safety Report 11668542 (Version 2)
Quarter: 2015Q4

REPORT INFORMATION
  Report Type: Spontaneous
  Country: US (occurrence: US)
  Receive Date: 20151027
  Receipt Date: 20151111
  Transmission Date: 20160304
  Serious: No
  Sender: FDA-Public Use
  Company Number: US-TAKEDA-2015TUS014779

PATIENT
  Age: 47 Year
  Sex: Female
  Weight: 74.83 kg

DRUGS (1)
  1. CONTRAVE [Suspect]
     Active Substance: BUPROPION HYDROCHLORIDE\NALTREXONE HYDROCHLORIDE
     Indication: OVERWEIGHT
     Dosage: 8/90 MG, QD
     Route: 048
     Dates: start: 20151018, end: 20151018

REACTIONS (6)
  - Agitation [Recovered/Resolved]
  - Vomiting [Recovered/Resolved]
  - Anxiety [Recovered/Resolved]
  - Nausea [Not Recovered/Not Resolved]
  - Fatigue [Recovered/Resolved]
  - Irritability [Recovered/Resolved]

NARRATIVE: CASE EVENT DATE: 20151018
